FAERS Safety Report 25116449 (Version 1)
Quarter: 2025Q1

REPORT INFORMATION
  Report Type: Report from Study
  Country: US (occurrence: US)
  Receive Date: 20250325
  Receipt Date: 20250325
  Transmission Date: 20250409
  Serious: Yes (Other)
  Sender: NOVARTIS
  Company Number: US-002147023-NVSC2025US048324

PATIENT
  Sex: Female

DRUGS (1)
  1. KESIMPTA [Suspect]
     Active Substance: OFATUMUMAB
     Indication: Product used for unknown indication
     Route: 065

REACTIONS (8)
  - Multiple sclerosis [Unknown]
  - Fall [Unknown]
  - Haemorrhage [Unknown]
  - Scar [Unknown]
  - Psychiatric symptom [Unknown]
  - Memory impairment [Unknown]
  - Pigmentation disorder [Unknown]
  - Ill-defined disorder [Unknown]
